FAERS Safety Report 18313663 (Version 1)
Quarter: 2020Q3

REPORT INFORMATION
  Report Type: Spontaneous
  Country: CN (occurrence: CN)
  Receive Date: 20200925
  Receipt Date: 20200925
  Transmission Date: 20201103
  Serious: Yes (Hospitalization, Disabling, Other)
  Sender: FDA-Public Use
  Company Number: CN-PFIZER INC-2020367166

PATIENT
  Age: 43 Year
  Sex: Male
  Weight: 70 kg

DRUGS (4)
  1. CELEBREX [Suspect]
     Active Substance: CELECOXIB
     Indication: INFLAMMATION
     Dosage: 0.2 G, 1X/DAY
     Route: 048
     Dates: start: 20200804, end: 20200909
  2. CELEBREX [Suspect]
     Active Substance: CELECOXIB
     Indication: ANALGESIC THERAPY
  3. CHANG JIAN NING [Suspect]
     Active Substance: SULFASALAZINE
     Indication: INFLAMMATION
     Dosage: 0.75 G, 2X/DAY
     Route: 048
     Dates: start: 20200804, end: 20200909
  4. CHANG JIAN NING [Suspect]
     Active Substance: SULFASALAZINE
     Indication: ANALGESIC THERAPY

REACTIONS (5)
  - Rash [Recovering/Resolving]
  - Lymphadenopathy [Recovering/Resolving]
  - Drug reaction with eosinophilia and systemic symptoms [Recovering/Resolving]
  - Liver function test increased [Recovering/Resolving]
  - Eosinophil count increased [Recovering/Resolving]

NARRATIVE: CASE EVENT DATE: 20200909
